FAERS Safety Report 6509656-0 (Version None)
Quarter: 2009Q4

REPORT INFORMATION
  Report Type: 
  Country: None (occurrence: None)
  Receive Date: 20091217
  Receipt Date: 20091120
  Transmission Date: 20100525
  Serious: Yes (Hospitalization)
  Sender: FDA-Public Use
  Company Number: DE-EBEWE-0885MTX09

PATIENT
  Age: 25 Year
  Sex: Female
  Weight: 68 kg

DRUGS (4)
  1. METHOTREXATE [Suspect]
     Indication: ARTHRITIS
     Dosage: 15 MG 1 WEEK ORAL
     Route: 048
  2. HUMIRA [Suspect]
     Indication: ARTHRITIS
     Dosage: 40 MG 1/14 DAYS SUBCUTAN
     Route: 058
  3. FOLSAESURE (FOLIC ACID) [Concomitant]
  4. IBUPROFEN [Concomitant]

REACTIONS (1)
  - ENCEPHALITIS VIRAL [None]
